FAERS Safety Report 9290901 (Version 1)
Quarter: 2013Q2

REPORT INFORMATION
  Report Type: Spontaneous
  Country: SE (occurrence: SE)
  Receive Date: 20130515
  Receipt Date: 20130515
  Transmission Date: 20140414
  Serious: Yes (Disabling)
  Sender: FDA-Public Use
  Company Number: SE-ASTRAZENECA-2013SE31469

PATIENT
  Age: 21632 Day
  Sex: Female

DRUGS (4)
  1. SEROQUEL [Suspect]
     Route: 048
     Dates: start: 20110901, end: 201302
  2. PROPAVAN [Suspect]
     Route: 065
     Dates: start: 20120430, end: 20121217
  3. CIPRALEX [Concomitant]
  4. IMOVANE [Concomitant]

REACTIONS (3)
  - Back pain [Recovering/Resolving]
  - Camptocormia [Unknown]
  - Dystonia [Unknown]
